FAERS Safety Report 5053831-1 (Version None)
Quarter: 2006Q3

REPORT INFORMATION
  Report Type: 
  Country: None (occurrence: None)
  Receive Date: 20060718
  Receipt Date: 20060615
  Transmission Date: 20061208
  Serious: Yes (Other)
  Sender: FDA-Public Use
  Company Number: BE-GLAXOSMITHKLINE-B0428322A

PATIENT
  Age: 48 Year
  Sex: Male
  Weight: 73.2 kg

DRUGS (6)
  1. AUGMENTIN '125' [Suspect]
     Indication: LIVER ABSCESS
     Dosage: 2G THREE TIMES PER DAY
     Route: 042
     Dates: start: 20060310, end: 20060310
  2. GLUCOPHAGE [Concomitant]
     Dosage: 500MG TWICE PER DAY
     Route: 048
  3. DIAMICRON [Concomitant]
     Dosage: 30MG PER DAY
     Route: 048
  4. LORMETAZEPAM [Concomitant]
     Dosage: 1MG THREE TIMES PER DAY
     Route: 048
  5. CACIT VITAMINE D3 [Concomitant]
     Route: 048
  6. ANTABUSE [Concomitant]
     Indication: ALCOHOLISM
     Dosage: 400UG PER DAY
     Route: 048
     Dates: end: 20060401

REACTIONS (3)
  - ANAPHYLACTIC REACTION [None]
  - COLD SWEAT [None]
  - HYPOTENSION [None]
